FAERS Safety Report 14859563 (Version 1)
Quarter: 2018Q2

REPORT INFORMATION
  Report Type: Spontaneous
  Country: US (occurrence: US)
  Receive Date: 20180508
  Receipt Date: 20180508
  Transmission Date: 20180711
  Serious: No
  Sender: FDA-Public Use
  Company Number: US-PFIZER INC-2018178663

PATIENT
  Age: 65 Year
  Sex: Female
  Weight: 56.24 kg

DRUGS (19)
  1. ALIMTA [Suspect]
     Active Substance: PEMETREXED DISODIUM
     Indication: NON-SMALL CELL LUNG CANCER
     Dosage: UNK
  2. ZOFRAN [Concomitant]
     Active Substance: ONDANSETRON HYDROCHLORIDE
     Dosage: 8 MG, 3X/DAY (1 TAB Q 8H)
     Route: 048
  3. COMPAZINE [Concomitant]
     Active Substance: PROCHLORPERAZINE MALEATE
     Dosage: 10 MG, 4X/DAY (1 TAB EVERY 6 HOURS)
     Route: 048
  4. GLUCOSAMINE + CHONDROITIN [Concomitant]
     Dosage: 3 DF, DAILY
     Route: 048
  5. FISH OIL OMEGA 3 [Concomitant]
     Active Substance: FISH OIL
     Dosage: 3 DF, DAILY (3-6-9 300/1,000MG)
     Route: 048
  6. PROBIOTIC [Concomitant]
     Active Substance: PROBIOTICS NOS
     Dosage: 2 DF, 1X/DAY (20 BILLION CELL 2 CAPSULE QD)
     Route: 048
  7. EMLA [Concomitant]
     Active Substance: LIDOCAINE\PRILOCAINE
     Dosage: UNK, AS DIRECTED
     Route: 061
  8. CALCIUM [Concomitant]
     Active Substance: CALCIUM
     Dosage: 220 MG, DAILY
     Route: 048
  9. TYLENOL EXTRA STRENGTH [Concomitant]
     Active Substance: ACETAMINOPHEN
     Dosage: 2 DF, AS NEEDED
     Route: 048
  10. FOLIC ACID. [Concomitant]
     Active Substance: FOLIC ACID
     Dosage: 1 MG, DAILY
     Route: 048
  11. AIRBORNE [Concomitant]
     Active Substance: HERBALS\MINERALS\VITAMINS
     Dosage: 1 DF, AS NEEDED (334/1.7 MG )
     Route: 048
  12. BIO-D-MULSION [Concomitant]
     Dosage: 2000 IU, (2000 UNIT/DROP 1 DOSE AS DIRECTED)
     Route: 048
  13. ESTRADIOL. [Concomitant]
     Active Substance: ESTRADIOL
     Dosage: 0.5 MG (AS DIRECTED)
     Route: 048
  14. CARBOPLATIN. [Suspect]
     Active Substance: CARBOPLATIN
     Indication: SMALL CELL CARCINOMA
     Dosage: UNK
  15. LUTEIN [Concomitant]
     Active Substance: LUTEIN
     Dosage: 20 MG, 1X/DAY (QD)
     Route: 048
  16. CALCIUM LACTATE [Concomitant]
     Active Substance: CALCIUM LACTATE
     Dosage: 500 MG, UNK
     Route: 048
  17. IBU [Concomitant]
     Active Substance: IBUPROFEN
     Dosage: 400 MG, AS NEEDED
     Route: 048
  18. ZOMETA [Concomitant]
     Active Substance: ZOLEDRONIC ACID
     Dosage: UNK
  19. DEXAMETHASONE. [Concomitant]
     Active Substance: DEXAMETHASONE
     Dosage: 4 MG, (AS DIRECTED)
     Route: 048

REACTIONS (2)
  - Cough [Unknown]
  - Dyspnoea exertional [Unknown]
